FAERS Safety Report 9414692 (Version 3)
Quarter: 2013Q3

REPORT INFORMATION
  Report Type: Spontaneous
  Country: US (occurrence: US)
  Receive Date: 20130717
  Receipt Date: 20130816
  Transmission Date: 20140515
  Serious: Yes (Hospitalization, Other)
  Sender: FDA-Public Use
  Company Number: 2013-000311

PATIENT
  Age: 73 Year
  Sex: Female
  Weight: 63.5 kg

DRUGS (24)
  1. ACTONEL [Suspect]
     Indication: OSTEOPOROSIS
     Route: 048
     Dates: start: 20031001, end: 200909
  2. ACTONEL [Suspect]
     Route: 048
     Dates: start: 20031001, end: 200909
  3. ACTONEL [Suspect]
     Route: 048
     Dates: start: 20031001, end: 200909
  4. FOSAMAX [Suspect]
     Indication: OSTEOPOROSIS
     Route: 048
     Dates: start: 2001, end: 20031001
  5. FOSAMAX [Suspect]
     Indication: OSTEOPOROSIS PROPHYLAXIS
     Route: 048
     Dates: start: 2001, end: 20031001
  6. FOSAMAX [Suspect]
     Indication: OSTEOPENIA
     Route: 048
     Dates: start: 2001, end: 20031001
  7. RECLAST [Suspect]
     Indication: OSTEOPOROSIS
     Dosage: INTRAVENOUSLY YEARLY
     Route: 042
     Dates: start: 20090916, end: 20100819
  8. NEXIUM [Concomitant]
  9. ASPIRIN (ACETYLSALICYLIC ACID) [Concomitant]
  10. CARDIZEM CD (DILTIAZEM HYDROCHLORIDE) [Concomitant]
  11. BENICAR (OLMESARTAN MEDOXOMIL) [Concomitant]
  12. LISINOPRIL AND HYDROCHLOROTHIAZIDE (HYDROCHLOROTHIAZIDE, LISINOPRIL) [Concomitant]
  13. PROPRANOLOL (PROPRANOLOL) [Concomitant]
  14. BENADRYL /00000402/ (DIPHENHYDRAMINE HYDROCHLORIDE) [Concomitant]
  15. ALLERGEN EXTRACTS [Concomitant]
  16. POTASSIUM (POTASSIUM) [Concomitant]
  17. COD LIVER OIL (COD-LIVER OIL) [Concomitant]
  18. GARLIC /01570501/ (ALLIUM SATIVUM) [Concomitant]
  19. LYSINE (LYSINE) [Concomitant]
  20. OSTEO BI-FLEX (CHONDROITIN SULFATE, GLUCOSAMINE HYDROCHLORIDE) [Concomitant]
  21. CENTRUM SILVER /01292501/ (ASCORBIC ACID, CALCIUM, MINERALS NOS, RETINOL, TOCOPHERYL ACETATE, VITAMIN B NOS, VITAMINS NOS, ZINC) [Concomitant]
  22. ACETATE, VITAMIN B NOS, VITAMINS NOS, ZINC [Concomitant]
  23. VITAMIN B12 /00056201/ (CYANOCOBALAMIN) [Concomitant]
  24. CALCIUM + VITAMIN D (CALCIUM CARBONATE COLECALCIFEROL [Concomitant]

REACTIONS (13)
  - Femur fracture [None]
  - Fall [None]
  - Pain in extremity [None]
  - Pathological fracture [None]
  - Bone disorder [None]
  - Stress fracture [None]
  - Low turnover osteopathy [None]
  - Pain [None]
  - Drug intolerance [None]
  - Arthralgia [None]
  - Fracture delayed union [None]
  - Osteogenesis imperfecta [None]
  - Musculoskeletal pain [None]
